FAERS Safety Report 5081210-X (Version None)
Quarter: 2006Q3

REPORT INFORMATION
  Report Type: 
  Country: None (occurrence: None)
  Receive Date: 20060810
  Receipt Date: 20060731
  Transmission Date: 20061208
  Serious: Yes (Hospitalization)
  Sender: FDA-Public Use
  Company Number: 14485

PATIENT
  Age: 68 Year
  Sex: Female
  Weight: 59.5 kg

DRUGS (7)
  1. FLUOROURACIL [Suspect]
     Indication: BILIARY NEOPLASM
     Dosage: 375 MG/M2 DAILY IV
     Route: 042
     Dates: start: 20060403
  2. LEUCOVORIN CALCIUM [Suspect]
     Indication: BILIARY NEOPLASM
     Dosage: 25 MG/M2 DAILY IV
     Route: 042
     Dates: start: 20060403
  3. DARVOCET [Concomitant]
  4. AMBIEN [Concomitant]
  5. COMPAZINE [Concomitant]
  6. ALDACTONE [Concomitant]
  7. MACROBID [Concomitant]

REACTIONS (5)
  - BLOOD CULTURE POSITIVE [None]
  - CULTURE URINE POSITIVE [None]
  - ENTEROCOCCAL INFECTION [None]
  - FEBRILE NEUTROPENIA [None]
  - PROTEUS INFECTION [None]
